FAERS Safety Report 17256562 (Version 1)
Quarter: 2020Q1

REPORT INFORMATION
  Report Type: Report from Study
  Country: US (occurrence: US)
  Receive Date: 20200110
  Receipt Date: 20200110
  Transmission Date: 20200409
  Serious: Yes (Other)
  Sender: FDA-Public Use
  Company Number: US-ROCHE-2518370

PATIENT
  Age: 73 Year
  Sex: Male
  Weight: 73.5 kg

DRUGS (3)
  1. IBRUTINIB [Suspect]
     Active Substance: IBRUTINIB
     Indication: CHRONIC LYMPHOCYTIC LEUKAEMIA
     Dosage: FOR 15 CYCLES?DATE OF MOST RECENT DOSE OF IBRUTINIB ADMINISTERED PRIOR TO SAE ONSET: 16/DEC/2019
     Route: 048
     Dates: start: 20190711
  2. OBINUTUZUMAB. [Suspect]
     Active Substance: OBINUTUZUMAB
     Indication: CHRONIC LYMPHOCYTIC LEUKAEMIA
     Dosage: 100 MG IV ON C1D1, 900 MG IV ON C1D2, 1000 MG IV ON C1D8 + C1D15, C2- 6D1?DATE OF MOST RECENT DOSE O
     Route: 042
     Dates: start: 20190711
  3. VENETOCLAX. [Suspect]
     Active Substance: VENETOCLAX
     Indication: CHRONIC LYMPHOCYTIC LEUKAEMIA
     Dosage: 20 MG PO QD DAYS 1-7 CYCLE 3, 50 MG PO QD DAYS 8-14, CYCLE 3, 100 MG PO QD DAYS 15-21, CYCLE 3, 200
     Route: 048
     Dates: start: 20190711

REACTIONS (1)
  - Stomatitis [Recovering/Resolving]

NARRATIVE: CASE EVENT DATE: 20191217
